FAERS Safety Report 5903423-4 (Version None)
Quarter: 2008Q3

REPORT INFORMATION
  Report Type: 
  Country: None (occurrence: None)
  Receive Date: 20080926
  Receipt Date: 20080923
  Transmission Date: 20090109
  Serious: Yes (Hospitalization, Other)
  Sender: FDA-Public Use
  Company Number: 2008SP017980

PATIENT
  Age: 27 Year
  Sex: Female
  Weight: 113 kg

DRUGS (12)
  1. PEG-INTRON [Suspect]
     Indication: HEPATITIS C
     Dosage: 90 MCG;QW;SC
     Route: 058
     Dates: start: 20080717
  2. REBETOL [Suspect]
     Indication: HEPATITIS C
     Dosage: 600 MG;BID;PO
     Route: 048
     Dates: start: 20080717
  3. CIPRO [Concomitant]
  4. PRISTIQ [Concomitant]
  5. KRISTALOSE [Concomitant]
  6. LASIX [Concomitant]
  7. MELATONIN [Concomitant]
  8. MILK THISTLE [Concomitant]
  9. PRILOSEC [Concomitant]
  10. SPIRONOLACTONE [Concomitant]
  11. XIFAXAN [Concomitant]
  12. ZINC SULFATE [Concomitant]

REACTIONS (7)
  - HAEMOGLOBIN DECREASED [None]
  - OEDEMA PERIPHERAL [None]
  - PAIN IN EXTREMITY [None]
  - PANCYTOPENIA [None]
  - PELVIC PAIN [None]
  - PLATELET COUNT DECREASED [None]
  - VAGINAL HAEMORRHAGE [None]
